FAERS Safety Report 4429607-2 (Version None)
Quarter: 2004Q3

REPORT INFORMATION
  Report Type: 
  Country: None (occurrence: None)
  Receive Date: 20040816
  Receipt Date: 20040802
  Transmission Date: 20050211
  Serious: Yes (Life-Threatening)
  Sender: FDA-Public Use
  Company Number: 2002130871PT

PATIENT
  Age: 31 Year
  Sex: Female

DRUGS (1)
  1. PROSTIN E2 [Suspect]
     Indication: INDUCED LABOUR
     Dosage: 0.5 MG BID, INTRACERVICAL
     Route: 019
     Dates: start: 20000321, end: 20000321

REACTIONS (7)
  - ANAPHYLACTOID REACTION [None]
  - CAESAREAN SECTION [None]
  - DISSEMINATED INTRAVASCULAR COAGULATION [None]
  - DRUG EXPOSURE DURING PREGNANCY [None]
  - METRORRHAGIA [None]
  - PREMATURE SEPARATION OF PLACENTA [None]
  - STILLBIRTH [None]
